FAERS Safety Report 8556139-2 (Version None)
Quarter: 2012Q3

REPORT INFORMATION
  Report Type: 
  Country: None (occurrence: None)
  Receive Date: 20120719
  Receipt Date: 20120716
  Transmission Date: 20120928
  Serious: Yes (Other)
  Sender: FDA-Public Use
  Company Number: 2012032883

PATIENT
  Sex: Male

DRUGS (2)
  1. HIZENTRA [Suspect]
     Dosage: 80 ML 1X/WEEK
  2. ANAESTHETICS, GENERAL (ANAESTHETICS, GENERAL) [Suspect]

REACTIONS (2)
  - HEMIPARESIS [None]
  - ASTHENIA [None]
